FAERS Safety Report 4693648-0 (Version None)
Quarter: 2005Q2

REPORT INFORMATION
  Report Type: 
  Country: None (occurrence: None)
  Receive Date: 20050617
  Receipt Date: 20050503
  Transmission Date: 20051028
  Serious: Yes (Other)
  Sender: FDA-Public Use
  Company Number: 2005UW06889

PATIENT
  Age: 0 Day

DRUGS (1)
  1. IRESSA [Suspect]
     Route: 064

REACTIONS (8)
  - CAESAREAN SECTION [None]
  - DRUG EXPOSURE DURING PREGNANCY [None]
  - JAUNDICE [None]
  - JAUNDICE NEONATAL [None]
  - NEONATAL APNOEIC ATTACK [None]
  - NEONATAL RESPIRATORY DISTRESS SYNDROME [None]
  - PREMATURE BABY [None]
  - SEPSIS NEONATAL [None]
